FAERS Safety Report 16599921 (Version 2)
Quarter: 2019Q3

REPORT INFORMATION
  Report Type: Report from Study
  Country: None (occurrence: CA)
  Receive Date: 20190720
  Receipt Date: 20190814
  Transmission Date: 20191004
  Serious: Yes (Death, Hospitalization, Other)
  Sender: FDA-Public Use
  Company Number: CA-ABBVIE-19K-028-2856936-00

PATIENT
  Sex: Male
  Weight: 23.5 kg

DRUGS (9)
  1. TAMSULOSIN CR [Concomitant]
     Active Substance: TAMSULOSIN
     Indication: PRODUCT USED FOR UNKNOWN INDICATION
     Dates: end: 20190710
  2. VITAMIN D [Concomitant]
     Active Substance: VITAMIN D NOS
     Indication: PRODUCT USED FOR UNKNOWN INDICATION
     Dosage: UNIT DOSE: 500MG / 1000UI
     Dates: end: 20190710
  3. DIBUCAINE. [Concomitant]
     Active Substance: DIBUCAINE
     Indication: PRODUCT USED FOR UNKNOWN INDICATION
     Dosage: UNIT DOSE (1 SUPPOSITORY): 10/5/5 MG
     Dates: end: 20190710
  4. NAPROXEN. [Concomitant]
     Active Substance: NAPROXEN
     Indication: PRODUCT USED FOR UNKNOWN INDICATION
     Dates: end: 20190710
  5. LORAZEPAM. [Concomitant]
     Active Substance: LORAZEPAM
     Indication: PRODUCT USED FOR UNKNOWN INDICATION
     Dates: end: 20190710
  6. FRAMYCETINE [Concomitant]
     Indication: PRODUCT USED FOR UNKNOWN INDICATION
     Dosage: UNIT DOSE (1 SUPPOSITORY): 10/5/5 MG
     Dates: end: 20190710
  7. HYDROCORTISONE. [Concomitant]
     Active Substance: HYDROCORTISONE
     Indication: PRODUCT USED FOR UNKNOWN INDICATION
     Dosage: UNIT DOSE (1 SUPPOSITORY): 10/5/5 MG
     Dates: end: 20190710
  8. CALCIUM CARBONATE. [Concomitant]
     Active Substance: CALCIUM CARBONATE
     Indication: PRODUCT USED FOR UNKNOWN INDICATION
     Dosage: UNIT DOSE: 500MG / 1000UI
     Dates: end: 20190710
  9. LUPRON DEPOT [Suspect]
     Active Substance: LEUPROLIDE ACETATE
     Indication: PROSTATE CANCER
     Route: 030
     Dates: start: 20190416, end: 20190416

REACTIONS (10)
  - Cerebrovascular accident [Fatal]
  - Fall [Fatal]
  - Asthenia [Unknown]
  - Urinary tract infection [Fatal]
  - Bacteraemia [Fatal]
  - Fluid intake reduced [Unknown]
  - Seizure [Unknown]
  - Hypophagia [Unknown]
  - Myalgia [Unknown]
  - Enterococcus test positive [Unknown]

NARRATIVE: CASE EVENT DATE: 2019
